FAERS Safety Report 17659784 (Version 2)
Quarter: 2020Q2

REPORT INFORMATION
  Report Type: Spontaneous
  Country: JP (occurrence: JP)
  Receive Date: 20200413
  Receipt Date: 20200526
  Transmission Date: 20200713
  Serious: Yes (Death, Hospitalization, Other)
  Sender: FDA-Public Use
  Company Number: NVSJ2020JP004203

PATIENT
  Age: 58 Year
  Sex: Male

DRUGS (1)
  1. VOTRIENT [Suspect]
     Active Substance: PAZOPANIB HYDROCHLORIDE
     Indication: MYXOID LIPOSARCOMA
     Route: 065

REACTIONS (9)
  - Gait disturbance [Unknown]
  - Febrile neutropenia [Recovered/Resolved]
  - Neutrophil count decreased [Recovered/Resolved]
  - Malignant pleural effusion [Fatal]
  - Altered state of consciousness [Unknown]
  - Thrombophlebitis migrans [Unknown]
  - Myxoid liposarcoma [Unknown]
  - Malignant neoplasm progression [Unknown]
  - Aphasia [Unknown]
